FAERS Safety Report 5025233-5 (Version None)
Quarter: 2006Q2

REPORT INFORMATION
  Report Type: 
  Country: None (occurrence: None)
  Receive Date: 20060608
  Receipt Date: 20060608
  Transmission Date: 20061013
  Serious: Yes (Hospitalization)
  Sender: FDA-Public Use
  Company Number: None

PATIENT
  Age: 50 Year
  Sex: Female
  Weight: 72 kg

DRUGS (2)
  1. TRICOR [Suspect]
     Dosage: PO
     Route: 048
  2. KETEK [Suspect]

REACTIONS (1)
  - MYOSITIS [None]
